FAERS Safety Report 8014811-7 (Version None)
Quarter: 2011Q4

REPORT INFORMATION
  Report Type: 
  Country: None (occurrence: None)
  Receive Date: 20111229
  Receipt Date: 20111219
  Transmission Date: 20120403
  Serious: Yes (Death)
  Sender: FDA-Public Use
  Company Number: US-PFIZER INC-2011311287

PATIENT
  Age: 36 Year
  Sex: Male

DRUGS (5)
  1. PROPRANOLOL HCL [Suspect]
     Dosage: UNK
  2. ETHANOL [Suspect]
     Dosage: UNK
  3. COCAINE [Suspect]
     Dosage: UNK
  4. ACETAMINOPHEN [Suspect]
  5. AMLODIPINE BESYLATE [Suspect]
     Dosage: UNK

REACTIONS (1)
  - COMPLETED SUICIDE [None]
